FAERS Safety Report 17983051 (Version 1)
Quarter: 2020Q3

REPORT INFORMATION
  Report Type: Spontaneous
  Country: US (occurrence: US)
  Receive Date: 20200702
  Receipt Date: 20200702
  Transmission Date: 20201103
  Serious: No
  Sender: FDA-Public Use
  Company Number: None

PATIENT
  Age: 83 Year
  Sex: Male

DRUGS (4)
  1. COREG [Concomitant]
     Active Substance: CARVEDILOL
  2. PREDNISONE. [Concomitant]
     Active Substance: PREDNISONE
  3. FUROSEMIDE. [Concomitant]
     Active Substance: FUROSEMIDE
  4. ZYTIGA [Suspect]
     Active Substance: ABIRATERONE ACETATE
     Route: 048
     Dates: start: 20200212

REACTIONS (4)
  - Oedema peripheral [None]
  - Fluid retention [None]
  - Cardiac failure congestive [None]
  - Increased tendency to bruise [None]

NARRATIVE: CASE EVENT DATE: 20200620
